FAERS Safety Report 5681106-6 (Version None)
Quarter: 2008Q1

REPORT INFORMATION
  Report Type: 
  Country: None (occurrence: None)
  Receive Date: 20080325
  Receipt Date: 20080314
  Transmission Date: 20080703
  Serious: Yes (Other)
  Sender: FDA-Public Use
  Company Number: 2008SP005351

PATIENT
  Age: 68 Year
  Sex: Female

DRUGS (1)
  1. TEMODAL [Suspect]
     Indication: GLIOBLASTOMA
     Dosage: 75 MG/M2;QD

REACTIONS (3)
  - FEBRILE NEUTROPENIA [None]
  - HAEMATOMA [None]
  - PANCYTOPENIA [None]
